FAERS Safety Report 15101750 (Version 3)
Quarter: 2021Q1

REPORT INFORMATION
  Report Type: Other
  Country: CA (occurrence: CA)
  Receive Date: 20180703
  Receipt Date: 20210125
  Transmission Date: 20210419
  Serious: Yes (Hospitalization, Other)
  Sender: FDA-Public Use
  Company Number: CA-APOTEX-2018AP016282

PATIENT
  Age: 30 Year
  Sex: Female

DRUGS (29)
  1. PACLITAXEL. [Suspect]
     Active Substance: PACLITAXEL
     Indication: PANCREATIC CARCINOMA
     Dosage: 280 MG, UNK, CYLICAL
     Route: 042
  2. GEMCITABINE. [Suspect]
     Active Substance: GEMCITABINE
     Indication: PANCREATIC CARCINOMA
     Dosage: 2200 MG, 3 EVEY 28 DAYS (200 MG/5.26 ML, 1 G/26.3 ML, AND 2G /52.6 ML SINGLE?USE VIALS)
     Route: 041
  3. TICILIMUMAB [Suspect]
     Active Substance: TREMELIMUMAB
     Indication: PANCREATIC CARCINOMA METASTATIC
     Dosage: 75 MG, Q.M.T.
     Route: 041
  4. FILGRASTIM [Concomitant]
     Active Substance: FILGRASTIM
     Indication: GROWTH HORMONE DEFICIENCY
     Dosage: UNK
     Route: 065
  5. LEVOMEPROMAZINE [Concomitant]
     Active Substance: LEVOMEPROMAZINE
     Indication: NAUSEA
     Route: 065
  6. SENNA [SENNOSIDE A+B] [Concomitant]
     Active Substance: SENNOSIDES A AND B
     Indication: CONSTIPATION
     Dosage: UNK
     Route: 065
  7. ABRAXANE [Suspect]
     Active Substance: PACLITAXEL
     Dosage: 280 MG, UNK, 3 EVERY 28 DAYS
     Route: 041
  8. TICILIMUMAB [Suspect]
     Active Substance: TREMELIMUMAB
     Dosage: 75 MG, UNK, CYCLICAL
     Route: 042
  9. SALBUTAMOL [Concomitant]
     Active Substance: ALBUTEROL
     Indication: DYSPNOEA
     Dosage: UNK
     Route: 065
  10. VITAMIN C [Concomitant]
     Active Substance: ASCORBIC ACID
     Indication: VITAMIN C DEFICIENCY
     Dosage: UNK
     Route: 065
  11. MEDI4736 [Suspect]
     Active Substance: DURVALUMAB
     Indication: PANCREATIC CARCINOMA
     Dosage: 1500 MG, CYCLICAL
     Route: 042
  12. DURVALUMAB. [Suspect]
     Active Substance: DURVALUMAB
     Indication: PANCREATIC CARCINOMA
     Dosage: 1500 MG, Q.M.T. 1 EVERY 4 WEEK \
     Route: 041
  13. ASCORBIC ACID. [Concomitant]
     Active Substance: ASCORBIC ACID
     Indication: VITAMIN SUPPLEMENTATION
     Dosage: UNK
     Route: 065
  14. ARIPIPRAZOLE. [Concomitant]
     Active Substance: ARIPIPRAZOLE
     Indication: ANXIETY
     Dosage: UNK
     Route: 065
  15. GEMCITABINE. [Suspect]
     Active Substance: GEMCITABINE
     Indication: PANCREATIC CARCINOMA METASTATIC
     Dosage: 2200 MG, CYCLICAL (200 MG/5.26 ML, 1G/26.3 ML AND 2G/52.6 ML SINGLE?USE VIALS)
     Route: 042
  16. ABRAXANE [Suspect]
     Active Substance: PACLITAXEL
     Indication: PANCREATIC CARCINOMA METASTATIC
     Dosage: 280 MG, UNK, 1 EVERY 4 WEEK
     Route: 041
  17. DURVALUMAB. [Suspect]
     Active Substance: DURVALUMAB
     Dosage: 1500 MG, Q.M.T. 1 EVERY 4 WEEK
     Route: 041
  18. HYDROMORPHONE [Concomitant]
     Active Substance: HYDROMORPHONE
     Indication: ABDOMINAL PAIN
     Dosage: UNK
     Route: 065
  19. PANTOLOC                           /01263201/ [Concomitant]
     Active Substance: PANTOPRAZOLE SODIUM
     Indication: ABDOMINAL DISCOMFORT
     Route: 065
  20. LAXASENE [Concomitant]
     Active Substance: HERBALS\SENNA LEAF\SENNOSIDES
     Indication: CONSTIPATION
     Route: 065
  21. MEDI4736 [Suspect]
     Active Substance: DURVALUMAB
     Dosage: 1500 MG, Q.WK.
     Route: 042
  22. DIPHENHYDRAMINE. [Concomitant]
     Active Substance: DIPHENHYDRAMINE
     Indication: RASH
     Dosage: UNK
     Route: 065
  23. LORAZEPAM. [Concomitant]
     Active Substance: LORAZEPAM
     Indication: NAUSEA
     Dosage: UNK
     Route: 065
  24. ADVIL [Concomitant]
     Active Substance: IBUPROFEN
     Indication: BACK PAIN
     Route: 065
  25. TYLENOL [Concomitant]
     Active Substance: ACETAMINOPHEN
     Indication: PRODUCT USED FOR UNKNOWN INDICATION
     Route: 065
  26. SENNA ALEXANDRINA [Concomitant]
     Active Substance: SENNA LEAF
     Indication: CONSTIPATION
     Dosage: UNK
     Route: 065
  27. DURVALUMAB. [Suspect]
     Active Substance: DURVALUMAB
     Indication: PANCREATIC CARCINOMA METASTATIC
     Dosage: 1500 MG, UNK, CYCLICAL
     Route: 042
  28. DURVALUMAB. [Suspect]
     Active Substance: DURVALUMAB
     Dosage: 1500 MG,Q.WK
     Route: 042
  29. DEXAMETHASONE. [Concomitant]
     Active Substance: DEXAMETHASONE
     Indication: NAUSEA
     Dosage: UNK
     Route: 065

REACTIONS (6)
  - Cholangitis infective [Not Recovered/Not Resolved]
  - Bacillus infection [Not Recovered/Not Resolved]
  - Pyrexia [Not Recovered/Not Resolved]
  - Febrile neutropenia [Not Recovered/Not Resolved]
  - Biliary tract infection [Not Recovered/Not Resolved]
  - Photosensitivity reaction [Recovered/Resolved]
